FAERS Safety Report 7579463-9 (Version None)
Quarter: 2011Q2

REPORT INFORMATION
  Report Type: 
  Country: None (occurrence: None)
  Receive Date: 20110622
  Receipt Date: 20110607
  Transmission Date: 20111010
  Serious: Yes (Other)
  Sender: FDA-Public Use
  Company Number: 2011-1842

PATIENT
  Age: 62 Year
  Sex: Female
  Weight: 93 kg

DRUGS (23)
  1. SOMATULINE DEPOT [Suspect]
     Indication: NEUROENDOCRINE TUMOUR
     Dosage: SEE IMAGE
     Route: 057
     Dates: start: 20100101
  2. LOSARTEN (LOSARTAN) [Concomitant]
  3. ZYRTEC [Concomitant]
  4. CALCIUM CITRATE (CALCIUM CITRATE) [Concomitant]
  5. VITAMIN B-100 (B-KOMPLEX) [Concomitant]
  6. VITAMIN C (ASCORGIC ACID) [Concomitant]
  7. VITAMIN B12 [Concomitant]
  8. VITAMIN E [Concomitant]
  9. OMEGA-3-ACID ETHYL ESTERS (LOVAZA) [Concomitant]
  10. NOVOLIN-N (INSULIN HUMAN INJECTION) [Concomitant]
  11. FAMOTIDINE [Concomitant]
  12. AMLODIPINE [Concomitant]
  13. LOMOTIL [Concomitant]
  14. MULTIVITAMIN (MULTIVITAMIN /00831701/) [Concomitant]
  15. VITAMIN D2 (COLECALCIFEROL) [Concomitant]
  16. NOVOLOG [Concomitant]
  17. METFORMIN HCL (METFORMIN HYDROCHLORIDE) [Concomitant]
  18. COZAAR [Concomitant]
  19. ALLEGRA [Concomitant]
  20. SIMVASTATIN [Concomitant]
  21. LEVOTHYROXINE SODIUM [Concomitant]
  22. MAGNESIUM (MAGNESIUM) [Concomitant]
  23. ASPIRIN [Concomitant]

REACTIONS (13)
  - PALPITATIONS [None]
  - INJECTION SITE REACTION [None]
  - SCAR [None]
  - TYPE 2 DIABETES MELLITUS [None]
  - FLUSHING [None]
  - TENDERNESS [None]
  - DIARRHOEA [None]
  - BURSITIS [None]
  - ARTHRITIS [None]
  - DEHYDRATION [None]
  - INSOMNIA [None]
  - HEADACHE [None]
  - TENDONITIS [None]
